FAERS Safety Report 4320843-2 (Version None)
Quarter: 2004Q1

REPORT INFORMATION
  Report Type: 
  Country: None (occurrence: None)
  Receive Date: 20040322
  Receipt Date: 20040224
  Transmission Date: 20041129
  Serious: Yes (Hospitalization)
  Sender: FDA-Public Use
  Company Number: PHBS2004JP02673

PATIENT
  Age: 5 Year
  Sex: Male

DRUGS (5)
  1. TEGRETOL [Suspect]
     Indication: EPILEPSY
     Dosage: 120 MG/DAY
     Route: 048
     Dates: start: 20030507, end: 20030521
  2. TEGRETOL [Suspect]
     Dosage: 200 MG/DAY
     Route: 048
     Dates: start: 20040213, end: 20040223
  3. DEPAKENE [Interacting]
     Indication: EPILEPSY
     Dosage: 200 MG/DAY
     Route: 048
     Dates: start: 20030416, end: 20040223
  4. RIVOTRIL [Interacting]
     Dosage: 1 MG/DAY
     Route: 048
     Dates: start: 20030601
  5. EXCEGRAN [Suspect]
     Dosage: 120 MG/DAY
     Route: 048
     Dates: start: 20030519, end: 20030601

REACTIONS (18)
  - BLISTER [None]
  - DRUG LEVEL DECREASED [None]
  - DRUG LEVEL INCREASED [None]
  - EPILEPSY [None]
  - ERYTHEMA [None]
  - EYE DISCHARGE [None]
  - MEDICATION ERROR [None]
  - ORAL SOFT TISSUE DISORDER [None]
  - PHARYNGEAL ERYTHEMA [None]
  - PRURITUS [None]
  - PYREXIA [None]
  - RASH [None]
  - RASH PAPULAR [None]
  - RASH SCALY [None]
  - SCAB [None]
  - SKIN LESION [None]
  - STEVENS-JOHNSON SYNDROME [None]
  - SWELLING FACE [None]
